FAERS Safety Report 14145672 (Version 1)
Quarter: 2017Q4

REPORT INFORMATION
  Report Type: Spontaneous
  Country: US (occurrence: US)
  Receive Date: 20171030
  Receipt Date: 20171030
  Transmission Date: 20180321
  Serious: Yes (Hospitalization, Disabling)
  Sender: FDA-Public Use
  Company Number: None

PATIENT
  Age: 29 Year
  Sex: Female
  Weight: 47.25 kg

DRUGS (1)
  1. REMICADE [Suspect]
     Active Substance: INFLIXIMAB
     Indication: CROHN^S DISEASE
     Dosage: ?          OTHER FREQUENCY:EVERY 8 WEEKS; INTRAVENOUS (NOT OTHERWISE SPECIFIED) ?
     Route: 042
     Dates: end: 20170929

REACTIONS (1)
  - Henoch-Schonlein purpura [None]

NARRATIVE: CASE EVENT DATE: 20171013
